FAERS Safety Report 8957374 (Version 9)
Quarter: 2016Q1

REPORT INFORMATION
  Report Type: Report from Study
  Country: CA (occurrence: CA)
  Receive Date: 20121210
  Receipt Date: 20160113
  Transmission Date: 20160526
  Serious: Yes (Hospitalization, Other)
  Sender: FDA-Public Use
  Company Number: CA-ROCHE-1163385

PATIENT
  Age: 53 Year
  Sex: Female
  Weight: 84 kg

DRUGS (25)
  1. ACTEMRA [Suspect]
     Active Substance: TOCILIZUMAB
     Route: 042
     Dates: start: 20140731
  2. RABEPRAZOLE [Concomitant]
     Active Substance: RABEPRAZOLE
     Dosage: 1 TABLET DAILY
     Route: 065
  3. FOLIC ACID. [Concomitant]
     Active Substance: FOLIC ACID
  4. AMITRIPTYLINE [Concomitant]
     Active Substance: AMITRIPTYLINE
  5. JANUVIA [Concomitant]
     Active Substance: SITAGLIPTIN PHOSPHATE
     Route: 065
  6. PRAVASTATIN [Concomitant]
     Active Substance: PRAVASTATIN\PRAVASTATIN SODIUM
     Dosage: 1 TABLET AT HS (BEDTIME)
     Route: 065
  7. ACTEMRA [Suspect]
     Active Substance: TOCILIZUMAB
     Dosage: TOCILIZUMAB INFUSION ON HOLD
     Route: 042
     Dates: start: 20140925
  8. VENTOLIN [Concomitant]
     Active Substance: ALBUTEROL SULFATE
     Dosage: 2 PUFFS 4 TIMES DAILY.
     Route: 050
  9. DEMEROL [Concomitant]
     Active Substance: MEPERIDINE HYDROCHLORIDE
     Dosage: 1 TABLET FOUR TIMES (EVERY 6 HOURS).
     Route: 065
  10. CELEBREX [Concomitant]
     Active Substance: CELECOXIB
  11. LYRICA [Concomitant]
     Active Substance: PREGABALIN
  12. ACTEMRA [Suspect]
     Active Substance: TOCILIZUMAB
     Indication: RHEUMATOID ARTHRITIS
     Route: 042
     Dates: start: 20110218
  13. ELAVIL [Concomitant]
     Active Substance: AMITRIPTYLINE HYDROCHLORIDE
     Dosage: 2 TABLETS AT HS (BEDTIME)
     Route: 065
  14. FLOVENT [Concomitant]
     Active Substance: FLUTICASONE PROPIONATE
     Dosage: AS REQUIRED
     Route: 065
  15. METFORMIN [Concomitant]
     Active Substance: METFORMIN HYDROCHLORIDE
     Dosage: 1-2 TABLETS TWICE DAILY.
     Route: 065
  16. ACTEMRA [Suspect]
     Active Substance: TOCILIZUMAB
     Route: 042
     Dates: start: 20111103
  17. ACTEMRA [Suspect]
     Active Substance: TOCILIZUMAB
     Route: 042
     Dates: start: 20121101
  18. SYMBICORT [Concomitant]
     Active Substance: BUDESONIDE\FORMOTEROL FUMARATE DIHYDRATE
     Dosage: DOSE : 200/6, 1-2 INHALATIONS TWICE DAILY
     Route: 050
  19. METHOTREXATE [Concomitant]
     Active Substance: METHOTREXATE
     Indication: RHEUMATOID ARTHRITIS
     Route: 048
     Dates: start: 20090317
  20. METHOTREXATE [Concomitant]
     Active Substance: METHOTREXATE
     Dosage: 8 TABLET ONCE WEEKLY
     Route: 065
  21. ACTEMRA [Suspect]
     Active Substance: TOCILIZUMAB
     Route: 042
     Dates: start: 20110324
  22. NAPROSYN [Suspect]
     Active Substance: NAPROXEN
     Indication: RHEUMATOID ARTHRITIS
     Route: 065
  23. PREMARIN [Concomitant]
     Active Substance: ESTROGENS, CONJUGATED
     Dosage: 1 TABLET DAILY
     Route: 065
  24. GRAVOL [Concomitant]
     Active Substance: DIMENHYDRINATE
  25. EZETROL [Concomitant]
     Active Substance: EZETIMIBE
     Dosage: 1 TABLET DAILY
     Route: 065

REACTIONS (12)
  - Laryngitis [Recovered/Resolved]
  - Pain [Recovering/Resolving]
  - Pain in extremity [Recovered/Resolved]
  - Tachycardia [Recovering/Resolving]
  - Meningitis viral [Unknown]
  - Pneumonia [Recovered/Resolved]
  - Syncope [Recovering/Resolving]
  - Herpes zoster [Recovered/Resolved]
  - Weight increased [Recovering/Resolving]
  - Arthropathy [Recovered/Resolved]
  - Encephalitis [Unknown]
  - Peripheral swelling [Recovered/Resolved]

NARRATIVE: CASE EVENT DATE: 201205
